FAERS Safety Report 4838038-2 (Version None)
Quarter: 2005Q4

REPORT INFORMATION
  Report Type: 
  Country: None (occurrence: None)
  Receive Date: 20051128
  Receipt Date: 20051118
  Transmission Date: 20060501
  Serious: Yes (Hospitalization)
  Sender: FDA-Public Use
  Company Number: FI-AVENTIS-200514355EU

PATIENT
  Age: 53 Year
  Sex: Female

DRUGS (6)
  1. KLEXANE [Suspect]
     Indication: VENOUS THROMBOSIS
     Route: 058
     Dates: start: 20050418
  2. CAPECITABINE [Suspect]
     Indication: BREAST CANCER
     Route: 048
     Dates: start: 20050422, end: 20050423
  3. IBUPROFEN [Suspect]
     Dates: start: 20050418
  4. PARACETAMOL [Suspect]
     Dates: start: 20050418
  5. CYCLOPHOSPHAMIDE [Concomitant]
     Indication: BREAST CANCER
     Route: 042
     Dates: start: 20050422
  6. EPIRUBICIN [Concomitant]
     Indication: BREAST CANCER
     Route: 042
     Dates: start: 20050422

REACTIONS (3)
  - GASTRIC ULCER [None]
  - HAEMATEMESIS [None]
  - OESOPHAGEAL ULCER [None]
